FAERS Safety Report 22124861 (Version 1)
Quarter: 2023Q1

REPORT INFORMATION
  Report Type: Report from Study
  Country: US (occurrence: US)
  Receive Date: 20230322
  Receipt Date: 20230322
  Transmission Date: 20230417
  Serious: Yes (Hospitalization)
  Sender: FDA-Public Use
  Company Number: US-002147023-NVSC2023US064123

PATIENT
  Sex: Female

DRUGS (1)
  1. ENTRESTO [Suspect]
     Active Substance: SACUBITRIL\VALSARTAN
     Indication: Cardiac failure
     Dosage: 1 DOSAGE FORM, BID
     Route: 065

REACTIONS (6)
  - Blood pressure abnormal [Unknown]
  - Visual impairment [Unknown]
  - Sinus disorder [Unknown]
  - Memory impairment [Unknown]
  - Headache [Unknown]
  - Drug ineffective [Unknown]
